FAERS Safety Report 6112295-7 (Version None)
Quarter: 2009Q1

REPORT INFORMATION
  Report Type: 
  Country: None (occurrence: None)
  Receive Date: 20090312
  Receipt Date: 20090302
  Transmission Date: 20090719
  Serious: Yes (Hospitalization)
  Sender: FDA-Public Use
  Company Number: GB-RANBAXY-2009RR-21984

PATIENT
  Age: 12 Day
  Sex: Male

DRUGS (2)
  1. LAMOTRIGINE [Suspect]
     Indication: POISONING DELIBERATE
     Dosage: UNK
     Route: 065
     Dates: start: 20070101
  2. PARACETAMOL [Suspect]
     Indication: ACCIDENTAL EXPOSURE
     Dosage: UNK
     Route: 048
     Dates: start: 20070101

REACTIONS (5)
  - ACCIDENTAL OVERDOSE [None]
  - DECREASED APPETITE [None]
  - GRAND MAL CONVULSION [None]
  - IRRITABILITY [None]
  - SOCIAL AVOIDANT BEHAVIOUR [None]
